FAERS Safety Report 9479638 (Version 2)
Quarter: 2013Q4

REPORT INFORMATION
  Report Type: Report from Study
  Country: BR (occurrence: BR)
  Receive Date: 20130827
  Receipt Date: 20131030
  Transmission Date: 20140711
  Serious: Yes (Hospitalization)
  Sender: FDA-Public Use
  Company Number: PHHY2013BR092823

PATIENT
  Sex: Female

DRUGS (1)
  1. DIOVAN [Suspect]
     Indication: HYPERTENSION
     Dosage: 80 MG, QD MORNING
     Route: 048

REACTIONS (3)
  - Stress [Recovering/Resolving]
  - Cardiac enzymes increased [Recovering/Resolving]
  - Nervousness [Unknown]
